FAERS Safety Report 8433269-7 (Version None)
Quarter: 2012Q2

REPORT INFORMATION
  Report Type: 
  Country: None (occurrence: None)
  Receive Date: 20120613
  Receipt Date: 20120607
  Transmission Date: 20120825
  Serious: No
  Sender: FDA-Public Use
  Company Number: US-PFIZER INC-2012137306

PATIENT
  Sex: Male
  Weight: 61.2 kg

DRUGS (4)
  1. IMURAN [Concomitant]
     Indication: RENAL TRANSPLANT
     Dosage: UNK
  2. LACTAID [Concomitant]
     Indication: LACTOSE INTOLERANCE
  3. SUTENT [Suspect]
     Indication: METASTATIC RENAL CELL CARCINOMA
     Dosage: 50 MG, FOR 42 DAY CYCLE
     Dates: start: 20120519
  4. PREDNISONE [Concomitant]
     Indication: RENAL TRANSPLANT
     Dosage: UNK

REACTIONS (5)
  - FLATULENCE [None]
  - ANAEMIA [None]
  - ERUCTATION [None]
  - BONE PAIN [None]
  - DIARRHOEA [None]
